FAERS Safety Report 25424394 (Version 1)
Quarter: 2025Q2

REPORT INFORMATION
  Report Type: Spontaneous
  Country: US (occurrence: US)
  Receive Date: 20250611
  Receipt Date: 20250611
  Transmission Date: 20250716
  Serious: No
  Sender: SANOFI AVENTIS
  Company Number: US-SA-2025SA165421

PATIENT
  Age: 4 Year
  Sex: Male
  Weight: 16 kg

DRUGS (6)
  1. DUPIXENT [Suspect]
     Active Substance: DUPILUMAB
     Indication: Illness
     Dosage: 200 MG, QOW
     Route: 058
     Dates: start: 202505
  2. ADVAIR HFA [Concomitant]
     Active Substance: FLUTICASONE PROPIONATE\SALMETEROL XINAFOATE
  3. ALBUTEROL SULFATE [Concomitant]
     Active Substance: ALBUTEROL SULFATE
  4. SINGULAIR [Concomitant]
     Active Substance: MONTELUKAST SODIUM
  5. ZYRTEC [Concomitant]
     Active Substance: CETIRIZINE HYDROCHLORIDE
  6. MELATONIN [Concomitant]
     Active Substance: MELATONIN

REACTIONS (4)
  - Feeling jittery [Not Recovered/Not Resolved]
  - Pyrexia [Not Recovered/Not Resolved]
  - Restlessness [Not Recovered/Not Resolved]
  - Product use in unapproved indication [Unknown]

NARRATIVE: CASE EVENT DATE: 20250501
